FAERS Safety Report 18716258 (Version 1)
Quarter: 2021Q1

REPORT INFORMATION
  Report Type: Spontaneous
  Country: US (occurrence: US)
  Receive Date: 20210107
  Receipt Date: 20210107
  Transmission Date: 20210419
  Serious: No
  Sender: FDA-Public Use
  Company Number: None

PATIENT
  Age: 54 Year
  Sex: Female

DRUGS (1)
  1. OTEZLA [Suspect]
     Active Substance: APREMILAST
     Indication: PSORIATIC ARTHROPATHY
     Route: 048
     Dates: start: 20201130

REACTIONS (4)
  - Diarrhoea [None]
  - Drug ineffective [None]
  - Pain in extremity [None]
  - Abdominal pain upper [None]

NARRATIVE: CASE EVENT DATE: 20201204
